FAERS Safety Report 9067846 (Version 1)
Quarter: 2013Q1

REPORT INFORMATION
  Report Type: Spontaneous
  Country: GB (occurrence: GB)
  Receive Date: 20130128
  Receipt Date: 20130128
  Transmission Date: 20140127
  Serious: Yes (Other)
  Sender: FDA-Public Use
  Company Number: GB-BAYER-2013-006122

PATIENT
  Age: 87 Year
  Sex: Male

DRUGS (8)
  1. CIPROFLOXACIN [Suspect]
     Dosage: UNK
     Route: 048
  2. CIPROFLOXACIN [Suspect]
     Indication: ENDOPHTHALMITIS
     Route: 021
  3. CIPROFLOXACIN [Suspect]
     Indication: ENDOPHTHALMITIS
  4. TEICOPLANIN [Concomitant]
     Indication: ENDOPHTHALMITIS
     Route: 021
  5. TEICOPLANIN [Concomitant]
     Indication: ENDOPHTHALMITIS
     Route: 047
  6. DEXAMETHASONE [Concomitant]
     Indication: ENDOPHTHALMITIS
     Route: 047
  7. KETOROLAC [Concomitant]
     Indication: ENDOPHTHALMITIS
     Route: 047
  8. ATROPINE [Concomitant]
     Indication: ENDOPHTHALMITIS
     Route: 047

REACTIONS (1)
  - Meningitis pneumococcal [Recovered/Resolved]
